FAERS Safety Report 5144771-8 (Version None)
Quarter: 2006Q4

REPORT INFORMATION
  Report Type: 
  Country: None (occurrence: None)
  Receive Date: 20061103
  Receipt Date: 20061103
  Transmission Date: 20070319
  Serious: Yes (Hospitalization)
  Sender: FDA-Public Use
  Company Number: None

PATIENT
  Sex: Male
  Weight: 91.4 kg

DRUGS (4)
  1. CISPLATIN [Suspect]
     Dosage: 155 MG
  2. TAXOL [Suspect]
     Dosage: 205 MG
  3. LISINOPRIL [Concomitant]
  4. MECLIZINE [Concomitant]

REACTIONS (10)
  - ANXIETY [None]
  - ASTHENIA [None]
  - BENIGN PROSTATIC HYPERPLASIA [None]
  - BLADDER DISTENSION [None]
  - HYPONATRAEMIA [None]
  - HYPOVOLAEMIA [None]
  - INAPPROPRIATE ANTIDIURETIC HORMONE SECRETION [None]
  - NEPHROPATHY [None]
  - POLYDIPSIA [None]
  - URINARY RETENTION [None]
